FAERS Safety Report 9792545 (Version 2)
Quarter: 2014Q2

REPORT INFORMATION
  Report Type: Spontaneous
  Country: US (occurrence: US)
  Receive Date: 20140102
  Receipt Date: 20140402
  Transmission Date: 20141212
  Serious: No
  Sender: FDA-Public Use
  Company Number: US-SANOFI-AVENTIS-2013SA095134

PATIENT
  Age: 54 Year
  Sex: Female

DRUGS (6)
  1. AUBAGIO [Suspect]
     Indication: MULTIPLE SCLEROSIS
     Route: 048
     Dates: start: 20130403, end: 20140113
  2. BACLOFEN [Concomitant]
     Indication: MUSCLE SPASTICITY
     Dates: start: 201112
  3. ABILIFY [Concomitant]
     Indication: AFFECTIVE DISORDER
  4. ATIVAN [Concomitant]
     Indication: ANXIETY
  5. GABAPENTIN [Concomitant]
     Indication: PAIN
     Dates: start: 201212
  6. KEPPRA [Concomitant]
     Indication: CONVULSION
     Dates: start: 201301

REACTIONS (2)
  - Paraesthesia [Unknown]
  - Hypoaesthesia [Recovered/Resolved]
